FAERS Safety Report 8224841-8 (Version None)
Quarter: 2012Q1

REPORT INFORMATION
  Report Type: 
  Country: None (occurrence: None)
  Receive Date: 20120319
  Receipt Date: 20120305
  Transmission Date: 20120608
  Serious: Yes (Other)
  Sender: FDA-Public Use
  Company Number: 2012MA003178

PATIENT
  Age: 26 Year
  Sex: Female

DRUGS (5)
  1. MYCOPHENOLATE MOFETIL (CELLCEPT) [Concomitant]
  2. PREDNISONE TAB [Concomitant]
  3. DIAZEPAM [Concomitant]
  4. PROGRAF [Concomitant]
  5. TRAMADOL HYDROCHLORIDE [Suspect]
     Indication: ARTHRALGIA
     Dosage: 50 MG;TID;PO
     Route: 048
     Dates: start: 19971001, end: 20060101

REACTIONS (6)
  - DRUG DEPENDENCE [None]
  - DRUG ADMINISTRATION ERROR [None]
  - EUPHORIC MOOD [None]
  - DEPRESSION [None]
  - DRUG WITHDRAWAL SYNDROME [None]
  - DEATH OF RELATIVE [None]
